FAERS Safety Report 9168041 (Version 1)
Quarter: 2013Q1

REPORT INFORMATION
  Report Type: Spontaneous
  Country: CN (occurrence: None)
  Receive Date: 20130307
  Receipt Date: 20130307
  Transmission Date: 20140127
  Serious: Yes (Other)
  Sender: FDA-Public Use
  Company Number: VAL_01457_2013

PATIENT
  Age: 25 Year
  Sex: Male

DRUGS (1)
  1. PARLODEL [Suspect]
     Indication: HYPERPROLACTINAEMIA
     Route: 048
     Dates: start: 20090831, end: 20090907

REACTIONS (4)
  - Hyperbilirubinaemia [None]
  - Liver disorder [None]
  - Blood bilirubin increased [None]
  - Bilirubin conjugated increased [None]
